FAERS Safety Report 7792347-6 (Version None)
Quarter: 2011Q4

REPORT INFORMATION
  Report Type: 
  Country: None (occurrence: None)
  Receive Date: 20111003
  Receipt Date: 20110928
  Transmission Date: 20120403
  Serious: Yes (Other)
  Sender: FDA-Public Use
  Company Number: PHEH2011US03236

PATIENT
  Sex: Female
  Weight: 63 kg

DRUGS (2)
  1. EXJADE [Suspect]
     Dosage: 1000 MG, QD
     Route: 048
     Dates: start: 20110630
  2. EXJADE [Suspect]
     Indication: MYELODYSPLASTIC SYNDROME
     Dosage: 1000 MG, DAILY
     Route: 048
     Dates: start: 20061001

REACTIONS (5)
  - OCULAR HYPERAEMIA [None]
  - OCULAR DISCOMFORT [None]
  - EYE SWELLING [None]
  - DIARRHOEA [None]
  - CYSTITIS [None]
